FAERS Safety Report 21298806 (Version 1)
Quarter: 2022Q3

REPORT INFORMATION
  Report Type: Spontaneous
  Country: US (occurrence: None)
  Receive Date: 20220906
  Receipt Date: 20220906
  Transmission Date: 20221027
  Serious: Yes (Other)
  Sender: FDA-Public Use
  Company Number: US-ROCHE-3174482

PATIENT
  Sex: Female

DRUGS (4)
  1. PEGASYS [Suspect]
     Active Substance: PEGINTERFERON ALFA-2A
     Indication: Polycythaemia vera
     Dosage: 180 MCG/ML AT 0.5 MG
     Route: 058
  2. ASPIRIN [Concomitant]
     Active Substance: ASPIRIN
  3. ALLOPURINOL [Concomitant]
     Active Substance: ALLOPURINOL
  4. VALSARTAN [Concomitant]
     Active Substance: VALSARTAN

REACTIONS (2)
  - Platelet count decreased [Unknown]
  - Off label use [Unknown]
